FAERS Safety Report 10090311 (Version 1)
Quarter: 2020Q3

REPORT INFORMATION
  Report Type: Spontaneous
  Country: CN (occurrence: CN)
  Receive Date: 20140421
  Receipt Date: 20140421
  Transmission Date: 20201105
  Serious: Yes (Hospitalization)
  Sender: FDA-Public Use
  Company Number: PHHY2014CN044358

PATIENT
  Age: 24 Year
  Sex: Female

DRUGS (4)
  1. AMIKACIN. [Suspect]
     Active Substance: AMIKACIN
     Indication: TUBERCULOSIS
     Dosage: 0.4 G
  2. ISONIAZID. [Suspect]
     Active Substance: ISONIAZID
     Indication: TUBERCULOSIS
     Dosage: 0.2 G
  3. MYCOBACTERIUM VACCAE [Concomitant]
     Dosage: 22.5 UG
  4. ISONIAZID. [Suspect]
     Active Substance: ISONIAZID
     Dosage: 0.1 G

REACTIONS (3)
  - Cough [Recovered/Resolved]
  - Night sweats [Recovered/Resolved]
  - Tuberculosis [Recovered/Resolved]
